FAERS Safety Report 9878904 (Version 1)
Quarter: 2014Q1

REPORT INFORMATION
  Report Type: Spontaneous
  Country: TW (occurrence: TW)
  Receive Date: 20140206
  Receipt Date: 20140206
  Transmission Date: 20141002
  Serious: Yes (Other)
  Sender: FDA-Public Use
  Company Number: TW-ROXANE LABORATORIES, INC.-2014-RO-00145RO

PATIENT
  Age: 62 Year
  Sex: Male

DRUGS (8)
  1. RISPERIDONE [Suspect]
     Indication: BIPOLAR II DISORDER
     Dosage: 4 MG
  2. RISPERIDONE [Suspect]
     Indication: MAJOR DEPRESSION
  3. QUETIAPINE FUMARATE [Suspect]
     Indication: BIPOLAR II DISORDER
     Dosage: 200 MG
  4. QUETIAPINE FUMARATE [Suspect]
     Indication: MAJOR DEPRESSION
  5. BUPROPION [Suspect]
     Indication: BIPOLAR II DISORDER
     Dosage: 300 MG
  6. BUPROPION [Suspect]
     Indication: MAJOR DEPRESSION
  7. LAMOTRIGINE [Suspect]
     Indication: BIPOLAR II DISORDER
     Dosage: 75 MG
  8. LAMOTRIGINE [Suspect]
     Indication: MAJOR DEPRESSION

REACTIONS (6)
  - Delirium [Recovered/Resolved]
  - Drug interaction [Recovered/Resolved]
  - Dry mouth [Unknown]
  - Dry skin [Unknown]
  - Abdominal discomfort [Unknown]
  - Constipation [Unknown]
